FAERS Safety Report 5251349-4 (Version None)
Quarter: 2007Q1

REPORT INFORMATION
  Report Type: 
  Country: None (occurrence: None)
  Receive Date: 20070228
  Receipt Date: 20060505
  Transmission Date: 20070707
  Serious: No
  Sender: FDA-Public Use
  Company Number: US-GLAXOSMITHKLINE-A0603376A

PATIENT
  Age: 34 Year
  Sex: Female

DRUGS (4)
  1. LAMICTAL [Suspect]
     Indication: DEPRESSED MOOD
     Dosage: 50MG PER DAY
     Route: 048
     Dates: start: 20060223, end: 20060301
  2. WELLBUTRIN XL [Concomitant]
     Indication: DEPRESSION
     Dosage: 300MG PER DAY
     Route: 048
     Dates: start: 20040323
  3. TRILEPTAL [Concomitant]
     Indication: PAIN
     Dosage: 1200U PER DAY
     Dates: start: 20020101
  4. LORAZEPAM [Concomitant]

REACTIONS (10)
  - ARTHRALGIA [None]
  - BLISTER [None]
  - ERYTHEMA [None]
  - INFLUENZA LIKE ILLNESS [None]
  - MALAISE [None]
  - PAIN [None]
  - PRURITUS [None]
  - PYREXIA [None]
  - RASH [None]
  - SKIN EXFOLIATION [None]
